FAERS Safety Report 7275734-4 (Version None)
Quarter: 2011Q1

REPORT INFORMATION
  Report Type: 
  Country: None (occurrence: None)
  Receive Date: 20110118
  Receipt Date: 20101216
  Transmission Date: 20110831
  Serious: Yes (Other)
  Sender: FDA-Public Use
  Company Number: HAPL-020-10-AU

PATIENT
  Sex: Female

DRUGS (1)
  1. NON-OCTAPHARMA PRODUCT (HUMAN NORMAL IMMUNOGLOBULIN FOR INTRAVENOUS AD [Suspect]
     Indication: MULTIFOCAL MOTOR NEUROPATHY
     Dosage: I.V.
     Route: 042

REACTIONS (1)
  - RETINAL VASCULAR OCCLUSION [None]
